FAERS Safety Report 18006568 (Version 1)
Quarter: 2020Q3

REPORT INFORMATION
  Report Type: Spontaneous
  Country: US (occurrence: US)
  Receive Date: 20200710
  Receipt Date: 20200710
  Transmission Date: 20201103
  Serious: No
  Sender: FDA-Public Use
  Company Number: US-PERRIGO-19US011254

PATIENT
  Age: 21 Year
  Sex: Female
  Weight: 88.44 kg

DRUGS (2)
  1. LEXAPRO [Concomitant]
     Active Substance: ESCITALOPRAM OXALATE
     Indication: DEPRESSION
     Dosage: UNK
     Route: 065
     Dates: start: 2018
  2. MICONAZOLE 1 [Suspect]
     Active Substance: MICONAZOLE NITRATE
     Indication: VULVOVAGINAL MYCOTIC INFECTION
     Dosage: 1200 MG, SINGLE
     Route: 067
     Dates: start: 20190910, end: 20190910

REACTIONS (5)
  - Vulvovaginal pruritus [Recovering/Resolving]
  - Vulvovaginal swelling [Recovered/Resolved]
  - Vulvovaginal pain [Recovering/Resolving]
  - Vulvovaginal burning sensation [Recovering/Resolving]
  - Chemical burn [Unknown]

NARRATIVE: CASE EVENT DATE: 20190910
